FAERS Safety Report 10615037 (Version 3)
Quarter: 2015Q1

REPORT INFORMATION
  Report Type: Spontaneous
  Country: JP (occurrence: JP)
  Receive Date: 20141201
  Receipt Date: 20150210
  Transmission Date: 20150720
  Serious: Yes (Hospitalization)
  Sender: FDA-Public Use
  Company Number: PHHY2014JP155887

PATIENT
  Age: 69 Year
  Sex: Female
  Weight: 53 kg

DRUGS (1)
  1. AFINITOR [Suspect]
     Active Substance: EVEROLIMUS
     Indication: RENAL CELL CARCINOMA
     Dosage: 10 MG, QD
     Route: 048
     Dates: start: 20130820, end: 20141112

REACTIONS (6)
  - Metastases to lung [Unknown]
  - Metastases to skin [Unknown]
  - Malignant neoplasm progression [Unknown]
  - Metastases to kidney [Unknown]
  - Thalamus haemorrhage [Recovered/Resolved with Sequelae]
  - Metastases to central nervous system [Unknown]

NARRATIVE: CASE EVENT DATE: 20141017
